FAERS Safety Report 25213762 (Version 1)
Quarter: 2025Q2

REPORT INFORMATION
  Report Type: Spontaneous
  Country: CA (occurrence: CA)
  Receive Date: 20250418
  Receipt Date: 20250418
  Transmission Date: 20250717
  Serious: Yes (Hospitalization, Disabling)
  Sender: PFIZER
  Company Number: CA-PFIZER INC-202500078498

PATIENT
  Age: 69 Year
  Sex: Male
  Weight: 86 kg

DRUGS (15)
  1. IRINOTECAN HYDROCHLORIDE [Suspect]
     Active Substance: IRINOTECAN HYDROCHLORIDE
     Indication: Adenocarcinoma gastric
     Route: 042
  2. FLUOROURACIL [Suspect]
     Active Substance: FLUOROURACIL
     Indication: Adenocarcinoma gastric
     Route: 042
  3. ALFUZOSIN [Concomitant]
     Active Substance: ALFUZOSIN
  4. DEXAMETHASONE [Concomitant]
     Active Substance: DEXAMETHASONE
  5. DICLOFENAC [Concomitant]
     Active Substance: DICLOFENAC
  6. FILGRASTIM [Concomitant]
     Active Substance: FILGRASTIM
  7. LEVOTHYROXINE [Concomitant]
     Active Substance: LEVOTHYROXINE
  8. LOPERAMIDE [Concomitant]
     Active Substance: LOPERAMIDE
  9. METOCLOPRAMIDE [Concomitant]
     Active Substance: METOCLOPRAMIDE
  10. OLANZAPINE [Concomitant]
     Active Substance: OLANZAPINE
  11. OXYBUTYNIN [Concomitant]
     Active Substance: OXYBUTYNIN
  12. PANTOPRAZOLE [Concomitant]
     Active Substance: PANTOPRAZOLE
  13. POTASSIUM [Concomitant]
     Active Substance: POTASSIUM
  14. PREGABALIN [Concomitant]
     Active Substance: PREGABALIN
  15. ROSUVASTATIN [Concomitant]
     Active Substance: ROSUVASTATIN
     Route: 065

REACTIONS (3)
  - Aphasia [Recovered/Resolved with Sequelae]
  - Cerebrovascular accident [Recovered/Resolved with Sequelae]
  - Facial paralysis [Recovered/Resolved with Sequelae]
